FAERS Safety Report 5349564-4 (Version None)
Quarter: 2007Q2

REPORT INFORMATION
  Report Type: 
  Country: None (occurrence: None)
  Receive Date: 20070607
  Receipt Date: 20070530
  Transmission Date: 20071010
  Serious: Yes (Hospitalization)
  Sender: FDA-Public Use
  Company Number: US-AVENTIS-200712323US

PATIENT
  Age: 56 Year
  Sex: Female

DRUGS (27)
  1. LANTUS [Suspect]
     Dates: start: 20070305
  2. LANTUS [Suspect]
     Dates: start: 20070301, end: 20070301
  3. LANTUS [Suspect]
     Dosage: DOSE: UNK
     Dates: start: 20070301
  4. LANTUS [Suspect]
     Dates: start: 20070301
  5. LANTUS [Suspect]
  6. OPTICLIK (INSULIN INJECTION PEN) [Suspect]
     Dates: start: 20070305
  7. APIDRA [Suspect]
     Dosage: DOSE: SLIDING SCALE
     Dates: start: 20070305, end: 20070329
  8. APIDRA [Suspect]
     Dosage: DOSE: 10 TID PLUS SLIDING SCALE IN HOSPITAL
     Dates: start: 20070301, end: 20070329
  9. APIDRA [Suspect]
     Dates: start: 20070301
  10. OPTICLIK GREY [Suspect]
     Dates: start: 20070305
  11. OPTICLIK GREY [Suspect]
  12. PREDNISONE TAB [Concomitant]
     Dosage: DOSE: UNK
  13. PROGRAF [Concomitant]
     Dosage: DOSE: UNK
  14. CELLCEPT [Concomitant]
     Dosage: DOSE: UNK
  15. BACTRIM [Concomitant]
     Dosage: DOSE: UNK
  16. MYCELEX [Concomitant]
     Dosage: DOSE: UNK
  17. ZANTAC [Concomitant]
     Dosage: DOSE: UNK
  18. COLACE [Concomitant]
     Dosage: DOSE: UNK
  19. OSCAL                              /00108001/ [Concomitant]
     Dosage: DOSE: UNK
  20. DETROL LA [Concomitant]
     Dosage: DOSE: UNK
  21. ZOLOFT [Concomitant]
     Dosage: DOSE: UNK
  22. REGLAN                             /00041901/ [Concomitant]
     Dosage: DOSE: UNK
  23. XANAX [Concomitant]
     Dosage: DOSE: UNK
  24. NORVASC [Concomitant]
     Dosage: DOSE: UNK
  25. LOMOTIL                            /00034001/ [Concomitant]
     Dosage: DOSE: UNK
  26. NEURONTIN [Concomitant]
     Dosage: DOSE: UNK
  27. PERCOCET                           /00867901/ [Concomitant]
     Dosage: DOSE: UNK

REACTIONS (3)
  - BLOOD GLUCOSE INCREASED [None]
  - IMPAIRED HEALING [None]
  - POSTOPERATIVE WOUND INFECTION [None]
